FAERS Safety Report 22623527 (Version 1)
Quarter: 2023Q2

REPORT INFORMATION
  Report Type: Spontaneous
  Country: US (occurrence: US)
  Receive Date: 20230621
  Receipt Date: 20230621
  Transmission Date: 20230722
  Serious: Yes (Life-Threatening, Hospitalization, Other)
  Sender: FDA-Public Use
  Company Number: US-MLMSERVICE-20230605-4330246-1

PATIENT
  Age: 48 Year
  Sex: Female

DRUGS (4)
  1. KCL [Suspect]
     Active Substance: POTASSIUM CHLORIDE
     Dosage: 15 MEQ/KG
  2. HYDROXYZINE [Concomitant]
     Active Substance: HYDROXYZINE HYDROCHLORIDE
  3. METOPROLOL SUCCINATE [Concomitant]
     Active Substance: METOPROLOL SUCCINATE
  4. RIVAROXABAN [Concomitant]
     Active Substance: RIVAROXABAN

REACTIONS (6)
  - Intentional overdose [Recovered/Resolved]
  - Hyperkalaemia [Recovered/Resolved]
  - Electrocardiogram QRS complex prolonged [Recovered/Resolved]
  - Cardiac arrest [Recovered/Resolved]
  - Hypotension [Recovered/Resolved]
  - Ventricular fibrillation [Recovered/Resolved]
